FAERS Safety Report 9319644 (Version 2)
Quarter: 2014Q2

REPORT INFORMATION
  Report Type: Spontaneous
  Country: US (occurrence: US)
  Receive Date: 20130530
  Receipt Date: 20140530
  Transmission Date: 20141212
  Serious: No
  Sender: FDA-Public Use
  Company Number: US-GLAXOSMITHKLINE-A1018341A

PATIENT
  Age: 29 Year
  Sex: Female

DRUGS (3)
  1. FLOLAN [Suspect]
     Indication: PULMONARY ARTERIAL HYPERTENSION
     Dosage: 32NGKM SEE DOSAGE TEXT
     Route: 042
     Dates: start: 20111024
  2. COUMADIN [Concomitant]
  3. ATIVAN [Concomitant]
     Indication: ANXIETY

REACTIONS (19)
  - Head discomfort [Unknown]
  - Flushing [Not Recovered/Not Resolved]
  - Application site induration [Unknown]
  - Application site discolouration [Unknown]
  - Paraesthesia [Unknown]
  - Vision blurred [Unknown]
  - Anxiety [Not Recovered/Not Resolved]
  - Hypersensitivity [Unknown]
  - Dizziness [Not Recovered/Not Resolved]
  - Hyperhidrosis [Not Recovered/Not Resolved]
  - Sensory disturbance [Not Recovered/Not Resolved]
  - Panic attack [Unknown]
  - Retching [Unknown]
  - Nausea [Not Recovered/Not Resolved]
  - Eye pain [Unknown]
  - Ocular hyperaemia [Unknown]
  - Palpitations [Not Recovered/Not Resolved]
  - Burning sensation [Not Recovered/Not Resolved]
  - Dyspnoea [Not Recovered/Not Resolved]
